FAERS Safety Report 14258836 (Version 6)
Quarter: 2018Q4

REPORT INFORMATION
  Report Type: Spontaneous
  Country: GB (occurrence: GB)
  Receive Date: 20171207
  Receipt Date: 20181105
  Transmission Date: 20190204
  Serious: Yes (Death, Hospitalization, Other)
  Sender: FDA-Public Use
  Company Number: GB-AUROBINDO-AUR-APL-2017-44019

PATIENT
  Age: 79 Year
  Sex: Female
  Weight: 79 kg

DRUGS (31)
  1. SODIUM HYDROGEN CARBONATE [Suspect]
     Active Substance: SODIUM BICARBONATE
     Indication: PRODUCT USED FOR UNKNOWN INDICATION
     Dosage: 1 GRAM, ONCE A DAY
     Route: 048
     Dates: start: 20170403
  2. ENGERIX-B [Suspect]
     Active Substance: HEPATITIS B VIRUS SUBTYPE ADW2 HBSAG SURFACE PROTEIN ANTIGEN
     Indication: PRODUCT USED FOR UNKNOWN INDICATION
     Dosage: 40 UG,UNK
     Route: 030
     Dates: start: 20161003
  3. SODIUM BICARBONATE. [Suspect]
     Active Substance: SODIUM BICARBONATE
     Indication: PRODUCT USED FOR UNKNOWN INDICATION
     Dosage: 1 G,QD
     Route: 048
     Dates: start: 20170403
  4. SODIUM BICARBONATE. [Suspect]
     Active Substance: SODIUM BICARBONATE
     Indication: PRODUCT USED FOR UNKNOWN INDICATION
  5. APIDRA [Suspect]
     Active Substance: INSULIN GLULISINE
     Indication: PERITONEAL DIALYSIS
     Dosage: DOSAGE FORM: UNKNOWN
     Route: 058
     Dates: start: 20170403
  6. APIDRA [Suspect]
     Active Substance: INSULIN GLULISINE
     Route: 033
     Dates: start: 20170330, end: 20170712
  7. ICODEXTRIN [Suspect]
     Active Substance: ICODEXTRIN
     Indication: PERITONEAL DIALYSIS
     Dosage: 2 L,UNK
     Route: 033
     Dates: start: 20170330, end: 20170712
  8. DIANEAL WITH DEXTROSE [Suspect]
     Active Substance: CALCIUM CHLORIDE\DEXTROSE\MAGNESIUM CHLORIDE\SODIUM CHLORIDE\SODIUM LACTATE
     Indication: PERITONEAL DIALYSIS
     Dosage: 5 LITER, ONCE A DAY
     Route: 033
     Dates: start: 20170330, end: 20170712
  9. LEVEMIR [Suspect]
     Active Substance: INSULIN DETEMIR
     Indication: PRODUCT USED FOR UNKNOWN INDICATION
     Dosage: 10 INTERNATIONAL UNIT, UNK
     Route: 058
     Dates: start: 20170403
  10. CLEXANE [Suspect]
     Active Substance: ENOXAPARIN SODIUM
     Indication: PRODUCT USED FOR UNKNOWN INDICATION
     Dosage: 20 MG,UNK
     Route: 042
     Dates: start: 20170317
  11. FOLIC ACID. [Suspect]
     Active Substance: FOLIC ACID
     Indication: PRODUCT USED FOR UNKNOWN INDICATION
     Dosage: 5 MG,UNK
     Route: 048
     Dates: start: 20170324
  12. TRAJENTA [Suspect]
     Active Substance: LINAGLIPTIN
     Indication: PRODUCT USED FOR UNKNOWN INDICATION
     Dosage: 5 MG,UNK
     Route: 048
     Dates: start: 20170403
  13. DIANEAL WITH DEXTROSE [Suspect]
     Active Substance: CALCIUM CHLORIDE\DEXTROSE\MAGNESIUM CHLORIDE\SODIUM CHLORIDE\SODIUM LACTATE
     Dosage: 10 L, UNK
     Route: 033
     Dates: start: 20170330, end: 20170712
  14. APIDRA [Suspect]
     Active Substance: INSULIN GLULISINE
     Route: 048
  15. APIDRA [Suspect]
     Active Substance: INSULIN GLULISINE
     Route: 048
  16. APIDRA [Suspect]
     Active Substance: INSULIN GLULISINE
     Route: 048
  17. EXTRANEAL [Suspect]
     Active Substance: CALCIUM CHLORIDE\ICODEXTRIN\MAGNESIUM CHLORIDE\SODIUM CHLORIDE\SODIUM LACTATE
     Indication: PERITONEAL DIALYSIS
     Dosage: 2 L,UNK
     Route: 033
     Dates: start: 20170330, end: 20170712
  18. ALFACALCIDOL [Suspect]
     Active Substance: ALFACALCIDOL
     Indication: PRODUCT USED FOR UNKNOWN INDICATION
     Dosage: 0.25 MICROGRAM, UNK
     Route: 048
     Dates: start: 20161213
  19. APIDRA [Suspect]
     Active Substance: INSULIN GLULISINE
     Route: 048
  20. VENOFER [Concomitant]
     Active Substance: IRON SUCROSE
     Indication: PRODUCT USED FOR UNKNOWN INDICATION
     Dosage: 100 MG,QW
     Route: 042
     Dates: start: 20170324
  21. RAMIPRIL. [Suspect]
     Active Substance: RAMIPRIL
     Indication: PRODUCT USED FOR UNKNOWN INDICATION
     Dosage: 2.5 MG,UNK
     Route: 048
     Dates: start: 20140711
  22. INSULIN [Suspect]
     Active Substance: INSULIN NOS
     Indication: PRODUCT USED FOR UNKNOWN INDICATION
     Dosage: 12 UNITS (3 TIMES A DAY)
     Route: 058
     Dates: start: 20170403
  23. APIDRA [Suspect]
     Active Substance: INSULIN GLULISINE
     Indication: PRODUCT USED FOR UNKNOWN INDICATION
     Route: 048
  24. APIDRA [Suspect]
     Active Substance: INSULIN GLULISINE
     Route: 048
  25. APIDRA [Suspect]
     Active Substance: INSULIN GLULISINE
     Dosage: 12 INTERNATIONAL UNIT, 3 TIMES A DAY
     Route: 058
     Dates: start: 20170403
  26. ADALAT CC [Suspect]
     Active Substance: NIFEDIPINE
     Indication: PRODUCT USED FOR UNKNOWN INDICATION
     Dosage: 60 MILLIGRAM, UNK
     Route: 048
     Dates: start: 20091027
  27. FUROSEMIDE TABLETS [Suspect]
     Active Substance: FUROSEMIDE
     Indication: PRODUCT USED FOR UNKNOWN INDICATION
     Dosage: 80 MG,UNK
     Route: 048
     Dates: start: 20170403
  28. EPREX [Suspect]
     Active Substance: ERYTHROPOIETIN
     Indication: ANAEMIA
     Dosage: 3000 INTERNATIONAL UNIT, EVERY WEEK
     Route: 058
     Dates: start: 20170628
  29. APIDRA [Suspect]
     Active Substance: INSULIN GLULISINE
     Route: 042
  30. APIDRA [Suspect]
     Active Substance: INSULIN GLULISINE
     Route: 030
  31. APIDRA [Suspect]
     Active Substance: INSULIN GLULISINE
     Route: 058

REACTIONS (1)
  - Cerebrovascular accident [Fatal]

NARRATIVE: CASE EVENT DATE: 20170712
